FAERS Safety Report 10306241 (Version 2)
Quarter: 2014Q3

REPORT INFORMATION
  Report Type: Spontaneous
  Country: US (occurrence: US)
  Receive Date: 20140715
  Receipt Date: 20140715
  Transmission Date: 20150326
  Serious: Yes (Hospitalization)
  Sender: FDA-Public Use
  Company Number: US-NOVOPROD-410859

PATIENT
  Age: 51 Year
  Sex: Male
  Weight: 90.71 kg

DRUGS (5)
  1. VICTOZA [Suspect]
     Active Substance: LIRAGLUTIDE
     Indication: TYPE 2 DIABETES MELLITUS
     Dosage: 1.8 MG, QD
     Route: 058
     Dates: start: 20131120, end: 20140505
  2. ZOCOR [Concomitant]
     Active Substance: SIMVASTATIN
     Indication: BLOOD CHOLESTEROL INCREASED
     Dosage: 20 MG, QD
     Route: 048
  3. LOTENSIN [Concomitant]
     Active Substance: BENAZEPRIL HYDROCHLORIDE
     Indication: HYPERTENSION
     Dosage: 10 MG, QD
     Route: 048
  4. METFORMIN [Concomitant]
     Active Substance: METFORMIN HYDROCHLORIDE
     Indication: TYPE 2 DIABETES MELLITUS
     Dosage: 1000 MG, BID
     Route: 048
  5. BUSPIRON                           /00803202/ [Concomitant]
     Indication: ANXIETY
     Dosage: 10 MG, QD
     Route: 048

REACTIONS (4)
  - Colon adenoma [Unknown]
  - Polyp [Unknown]
  - Pancreatitis necrotising [Recovering/Resolving]
  - Hepatobiliary scan abnormal [Unknown]

NARRATIVE: CASE EVENT DATE: 20140414
